FAERS Safety Report 25814714 (Version 2)
Quarter: 2025Q3

REPORT INFORMATION
  Report Type: Spontaneous
  Country: EU (occurrence: EU)
  Receive Date: 20250917
  Receipt Date: 20250923
  Transmission Date: 20251021
  Serious: Yes (Other)
  Sender: ALEXION PHARMACEUTICALS
  Company Number: EU-AstraZeneca-CH-00950125AM

PATIENT
  Sex: Female

DRUGS (3)
  1. TICAGRELOR [Suspect]
     Active Substance: TICAGRELOR
     Indication: Cardiac disorder
     Dosage: 60 MILLIGRAM, BID, MORNING AND EVENING
  2. TICAGRELOR [Suspect]
     Active Substance: TICAGRELOR
     Dosage: 60 MILLIGRAM, QD
  3. ASPIRIN [Concomitant]
     Active Substance: ASPIRIN
     Route: 065

REACTIONS (18)
  - Abdominal discomfort [Unknown]
  - Abdominal pain upper [Unknown]
  - Dyspepsia [Unknown]
  - Gastrointestinal inflammation [Unknown]
  - Diarrhoea [Unknown]
  - Fistula [Unknown]
  - Impaired healing [Unknown]
  - Pruritus [Recovered/Resolved]
  - Nocturia [Unknown]
  - Eructation [Unknown]
  - Depression [Unknown]
  - Histamine intolerance [Unknown]
  - Sleep disorder [Unknown]
  - Scab [Unknown]
  - Nausea [Unknown]
  - Haematochezia [Unknown]
  - Pollakiuria [Unknown]
  - Off label use [Unknown]
